FAERS Safety Report 9683616 (Version 2)
Quarter: 2013Q4

REPORT INFORMATION
  Report Type: Spontaneous
  Country: IT (occurrence: IT)
  Receive Date: 20131112
  Receipt Date: 20131126
  Transmission Date: 20140711
  Serious: Yes (Other)
  Sender: FDA-Public Use
  Company Number: IT-PFIZER INC-2013318547

PATIENT
  Age: 73 Year
  Sex: Male

DRUGS (6)
  1. RAMIPRIL [Suspect]
     Indication: HYPERTENSION
     Dosage: 2.5 MG, DAILY
     Route: 048
     Dates: start: 20130201, end: 20130919
  2. ALFUZOSIN [Suspect]
     Indication: BENIGN PROSTATIC HYPERPLASIA
     Dosage: 10 MG, DAILY
     Route: 048
     Dates: start: 20100901, end: 20130919
  3. LUVION [Suspect]
     Indication: HYPERTENSION
     Dosage: 50 MG (1 DF), DAILY
     Route: 048
     Dates: start: 20130201, end: 20130919
  4. SOLIAN [Concomitant]
     Dosage: UNK
     Route: 065
     Dates: start: 20130201, end: 20131031
  5. BISOPROLOL HEMIFUMARATE [Concomitant]
     Indication: VENTRICULAR EXTRASYSTOLES
     Dosage: UNK
     Route: 065
     Dates: start: 20130201, end: 20131031
  6. FINASTERIDE [Concomitant]
     Indication: BENIGN PROSTATIC HYPERPLASIA
     Dosage: UNK
     Route: 065
     Dates: start: 20100901, end: 20131031

REACTIONS (7)
  - Hypotension [Recovered/Resolved]
  - Sinus bradycardia [Unknown]
  - Disorientation [Recovered/Resolved]
  - Presyncope [Recovered/Resolved]
  - Hyperhidrosis [Recovered/Resolved]
  - Tremor [Recovered/Resolved]
  - Trigger finger [Recovered/Resolved]
